FAERS Safety Report 6037529-9 (Version None)
Quarter: 2009Q1

REPORT INFORMATION
  Report Type: 
  Country: None (occurrence: None)
  Receive Date: 20090114
  Receipt Date: 20090107
  Transmission Date: 20090719
  Serious: Yes (Other)
  Sender: FDA-Public Use
  Company Number: US-ELI_LILLY_AND_COMPANY-US200901000989

PATIENT
  Sex: Male
  Weight: 99.773 kg

DRUGS (5)
  1. BYETTA [Suspect]
     Dosage: 5 UG, 2/D
     Route: 058
     Dates: start: 20070101, end: 20070101
  2. BYETTA [Suspect]
     Dosage: 10 UG, 2/D
     Route: 058
     Dates: start: 20070101
  3. GLUCOPHAGE [Concomitant]
     Dosage: UNK, UNKNOWN
  4. NIACIN [Concomitant]
     Dosage: UNK, UNKNOWN
  5. INSULIN GLARGINE [Concomitant]
     Dosage: UNK, UNKNOWN
     Dates: start: 19890101

REACTIONS (9)
  - BLOOD GLUCOSE DECREASED [None]
  - BLOOD GLUCOSE INCREASED [None]
  - DYSPHONIA [None]
  - EXCORIATION [None]
  - FALL [None]
  - GLYCOSYLATED HAEMOGLOBIN INCREASED [None]
  - IRRITABILITY [None]
  - LOSS OF CONSCIOUSNESS [None]
  - PARANASAL SINUS HYPERSECRETION [None]
